FAERS Safety Report 18638625 (Version 1)
Quarter: 2020Q4

REPORT INFORMATION
  Report Type: Spontaneous
  Country: GB (occurrence: GB)
  Receive Date: 20201219
  Receipt Date: 20201219
  Transmission Date: 20210114
  Serious: Yes (Other)
  Sender: FDA-Public Use
  Company Number: GB-009507513-2012GBR008593

PATIENT
  Age: 79 Year
  Sex: Female
  Weight: 41 kg

DRUGS (3)
  1. OCTASA [Concomitant]
     Active Substance: MESALAMINE
  2. GLICLAZIDE [Concomitant]
     Active Substance: GLICLAZIDE
  3. SITAGLIPTIN PHOSPHATE [Suspect]
     Active Substance: SITAGLIPTIN PHOSPHATE
     Indication: DIABETES MELLITUS
     Dosage: 100 MILLIGRAM
     Route: 048
     Dates: start: 20200315, end: 20200712

REACTIONS (3)
  - Abdominal pain [Recovering/Resolving]
  - Malaise [Unknown]
  - Carbohydrate antigen 19-9 increased [Recovering/Resolving]

NARRATIVE: CASE EVENT DATE: 20200510
